FAERS Safety Report 9938047 (Version 1)
Quarter: 2014Q1

REPORT INFORMATION
  Report Type: Spontaneous
  Country: US (occurrence: US)
  Receive Date: 20140303
  Receipt Date: 20140303
  Transmission Date: 20141002
  Serious: Yes (Other)
  Sender: FDA-Public Use
  Company Number: US-SHIRE-ALL1-2014-01263

PATIENT
  Sex: Female

DRUGS (2)
  1. VYVANSE [Suspect]
     Indication: ATTENTION DEFICIT/HYPERACTIVITY DISORDER
     Dosage: 60 MG, 2X/DAY:BID
     Route: 048
  2. VYVANSE [Suspect]
     Dosage: UNK UNK, UNKNOWN
     Route: 048
     Dates: start: 2009

REACTIONS (8)
  - Drug dependence [Not Recovered/Not Resolved]
  - Cardiomyopathy [Not Recovered/Not Resolved]
  - Weight decreased [Unknown]
  - Underweight [Not Recovered/Not Resolved]
  - Exposure during pregnancy [Recovered/Resolved]
  - Exposure during breast feeding [Unknown]
  - Prescribed overdose [Not Recovered/Not Resolved]
  - Drug prescribing error [Not Recovered/Not Resolved]
